FAERS Safety Report 5405908-6 (Version None)
Quarter: 2007Q3

REPORT INFORMATION
  Report Type: 
  Country: None (occurrence: None)
  Receive Date: 20070806
  Receipt Date: 20070706
  Transmission Date: 20080115
  Serious: No
  Sender: FDA-Public Use
  Company Number: SE-AVENTIS-200716607GDDC

PATIENT
  Age: 27 Year
  Sex: Female

DRUGS (1)
  1. ARAVA [Suspect]
     Route: 048
     Dates: start: 20051201, end: 20061101

REACTIONS (1)
  - DRUG EXPOSURE DURING PREGNANCY [None]
